FAERS Safety Report 9337366 (Version 3)
Quarter: 2013Q3

REPORT INFORMATION
  Report Type: Spontaneous
  Country: AT (occurrence: AT)
  Receive Date: 20130607
  Receipt Date: 20130805
  Transmission Date: 20140515
  Serious: Yes (Other)
  Sender: FDA-Public Use
  Company Number: AT-GLAXOSMITHKLINE-B0896940A

PATIENT
  Age: 52 Year
  Sex: Male
  Weight: 70 kg

DRUGS (7)
  1. TROBALT [Suspect]
     Indication: PARTIAL SEIZURES
     Dosage: 200MG THREE TIMES PER DAY
     Route: 065
     Dates: start: 20130122
  2. NEUROTOP RET [Concomitant]
     Indication: EPILEPSY
  3. KEPPRA [Concomitant]
     Dosage: 1000MG TWICE PER DAY
  4. FRISIUM [Concomitant]
     Indication: EPILEPSY
     Dosage: 10MG THREE TIMES PER DAY
  5. ITERIUM [Concomitant]
  6. INDAPAMID [Concomitant]
     Dosage: 1.5MG PER DAY
  7. ATACAND [Concomitant]

REACTIONS (6)
  - Skin discolouration [Not Recovered/Not Resolved]
  - Sjogren^s syndrome [Unknown]
  - Myopia [Unknown]
  - Astigmatism [Unknown]
  - Presbyopia [Unknown]
  - Haematoma [Not Recovered/Not Resolved]
